FAERS Safety Report 19255548 (Version 8)
Quarter: 2022Q3

REPORT INFORMATION
  Report Type: Report from Study
  Country: US (occurrence: US)
  Receive Date: 20210513
  Receipt Date: 20220904
  Transmission Date: 20221027
  Serious: Yes (Life-Threatening)
  Sender: FDA-Public Use
  Company Number: US-SA-2021SA090484

PATIENT
  Age: 17 Year
  Sex: Male
  Weight: 61.4 kg

DRUGS (37)
  1. ISATUXIMAB [Suspect]
     Active Substance: ISATUXIMAB
     Indication: T-cell type acute leukaemia
     Dosage: 20 MG/KG, QW
     Route: 042
     Dates: start: 20210326, end: 20210326
  2. ISATUXIMAB [Suspect]
     Active Substance: ISATUXIMAB
     Dosage: 20 MG/KG, QW
     Route: 042
     Dates: start: 20210312, end: 20210312
  3. ISATUXIMAB [Suspect]
     Active Substance: ISATUXIMAB
     Dosage: 20 MG/KG, QW,
     Route: 042
     Dates: start: 20210312, end: 20210312
  4. DEXAMETHASONE [Suspect]
     Active Substance: DEXAMETHASONE
     Indication: T-cell type acute leukaemia
     Dosage: 10 MG/M2, DAYS 43 TO 47, AND 57
     Route: 048
     Dates: start: 20210330, end: 20210330
  5. DEXAMETHASONE [Suspect]
     Active Substance: DEXAMETHASONE
     Dosage: 10 MG/M2, DAYS ?3 TO ?1 (CYCLE 1 ONLY), 1, 8
     Route: 048
     Dates: start: 20210309, end: 20210309
  6. MITOXANTRONE [Suspect]
     Active Substance: MITOXANTRONE HYDROCHLORIDE
     Indication: T-cell type acute leukaemia
     Dosage: 10 MG/M2, ON DAYS 8 AND 9
     Route: 042
     Dates: start: 20210320, end: 20210320
  7. MITOXANTRONE [Suspect]
     Active Substance: MITOXANTRONE HYDROCHLORIDE
     Dosage: 10 MG/M2, ON DAYS 8 AND 9
     Route: 042
     Dates: start: 20210319, end: 20210319
  8. VINCRISTINE SULFATE [Suspect]
     Active Substance: VINCRISTINE SULFATE
     Indication: T-cell type acute leukaemia
     Dosage: 1.5 MG/M2, ON DAYS 10, 17, 24 AND 31
     Route: 042
     Dates: start: 20210328, end: 20210328
  9. VINCRISTINE SULFATE [Suspect]
     Active Substance: VINCRISTINE SULFATE
     Dosage: 1.5 MG/M2, ON DAYS 10, 17, 24 AND 31
     Route: 042
     Dates: start: 20210321, end: 20210321
  10. ASPARAGINASE [Suspect]
     Active Substance: ASPARAGINASE
     Indication: T-cell type acute leukaemia
     Dosage: 1000 IU/M2
     Route: 042
     Dates: start: 20210321, end: 20210321
  11. MONTELUKAST [Concomitant]
     Active Substance: MONTELUKAST SODIUM
     Indication: Prophylaxis
     Dosage: TOTAL DAILY DOSE: 10 MG
     Route: 048
     Dates: start: 20210312, end: 20210312
  12. MONTELUKAST [Concomitant]
     Active Substance: MONTELUKAST SODIUM
     Dosage: TOTAL DAILY DOSE: 10 MG
     Route: 048
     Dates: start: 20210326, end: 20210326
  13. MONTELUKAST [Concomitant]
     Active Substance: MONTELUKAST SODIUM
     Dosage: TOTAL DAILY DOSE: 10 MG
     Route: 048
     Dates: start: 20210319, end: 20210319
  14. ACETAMINOPHEN [Concomitant]
     Active Substance: ACETAMINOPHEN
     Indication: Prophylaxis
     Dosage: UNK
     Route: 048
     Dates: start: 20210309
  15. ACETAMINOPHEN [Concomitant]
     Active Substance: ACETAMINOPHEN
     Dosage: TOTAL DAILY DOSE: 1000 MG
     Route: 048
     Dates: start: 20210319, end: 20210319
  16. ACETAMINOPHEN [Concomitant]
     Active Substance: ACETAMINOPHEN
     Dosage: TOTAL DAILY DOSE: 1000 MG
     Route: 048
     Dates: start: 20210326, end: 20210326
  17. ACETAMINOPHEN [Concomitant]
     Active Substance: ACETAMINOPHEN
     Dosage: TOTAL DAILY DOSE: 2000 MG
     Route: 048
     Dates: start: 20210312, end: 20210312
  18. FAMOTIDINE [Concomitant]
     Active Substance: FAMOTIDINE
     Indication: Prophylaxis
     Dosage: TOTAL DAILY DOSE: 20 MG
     Route: 048
     Dates: start: 20210319, end: 20210319
  19. FAMOTIDINE [Concomitant]
     Active Substance: FAMOTIDINE
     Dosage: TOTAL DAILY DOSE: 20 MG
     Route: 048
     Dates: start: 20210326, end: 20210326
  20. FAMOTIDINE [Concomitant]
     Active Substance: FAMOTIDINE
     Dosage: TOTAL DAILY DOSE: 20 MG
     Route: 048
     Dates: start: 20210312, end: 20210312
  21. DIPHENHYDRAMINE [Concomitant]
     Active Substance: DIPHENHYDRAMINE
     Indication: Prophylaxis
     Dosage: TOTAL DAILY DOSE: 100 MG
     Route: 048
     Dates: start: 20210319, end: 20210319
  22. DIPHENHYDRAMINE [Concomitant]
     Active Substance: DIPHENHYDRAMINE
     Dosage: TOTAL DAILY DOSE: 50 MG
     Route: 048
     Dates: start: 20210326, end: 20210326
  23. DIPHENHYDRAMINE [Concomitant]
     Active Substance: DIPHENHYDRAMINE
     Dosage: TOTAL DAILY DOSE: 100 MG
     Route: 048
     Dates: start: 20210312, end: 20210312
  24. DEXAMETHASONE [Concomitant]
     Active Substance: DEXAMETHASONE
     Indication: Prophylaxis
     Dosage: TOTAL DAILY DOSE: 18  MG
     Route: 048
     Dates: start: 20210312, end: 20210312
  25. DEXAMETHASONE [Concomitant]
     Active Substance: DEXAMETHASONE
     Dosage: UNK
     Route: 048
     Dates: start: 20210326, end: 20210326
  26. DEXAMETHASONE [Concomitant]
     Active Substance: DEXAMETHASONE
     Dosage: 18 MG
     Route: 048
     Dates: start: 20210319, end: 20210319
  27. DEXAMETHASONE [Concomitant]
     Active Substance: DEXAMETHASONE
     Dosage: 17 MG
     Route: 048
     Dates: start: 20210405, end: 20210405
  28. DEXAMETHASONE [Concomitant]
     Active Substance: DEXAMETHASONE
     Dosage: UNK
     Route: 048
     Dates: start: 20210412, end: 20210412
  29. SULFAMETHOXAZOLE\TRIMETHOPRIM [Concomitant]
     Active Substance: SULFAMETHOXAZOLE\TRIMETHOPRIM
     Indication: Prophylaxis
     Dosage: UNK
     Route: 048
     Dates: start: 20210307
  30. ALLOPURINOL [Concomitant]
     Active Substance: ALLOPURINOL
     Indication: Prophylaxis
     Dosage: UNK
     Route: 048
     Dates: start: 20200309
  31. CHOLECALCIFEROL [Concomitant]
     Active Substance: CHOLECALCIFEROL
     Dosage: UNK
     Route: 048
     Dates: start: 20191104
  32. ONDANSETRON [Concomitant]
     Active Substance: ONDANSETRON
     Indication: Prophylaxis
     Dosage: UNK
     Route: 048
     Dates: start: 20210310
  33. METHOTREXATE [Concomitant]
     Active Substance: METHOTREXATE
     Indication: Prophylaxis
     Dosage: UNK
     Route: 065
     Dates: start: 20210326, end: 20210326
  34. METHOTREXATE [Concomitant]
     Active Substance: METHOTREXATE
     Dosage: UNK
     Route: 065
     Dates: start: 20200212, end: 20210303
  35. LORAZEPAM [Concomitant]
     Active Substance: LORAZEPAM
     Indication: Infusion related reaction
     Dosage: 1 MG
     Route: 048
     Dates: start: 20220312, end: 20220312
  36. METHYLPREDNISOLONE [Concomitant]
     Active Substance: METHYLPREDNISOLONE
     Dosage: TOTAL DAILY DOSE: 100 MG
     Route: 042
     Dates: start: 20210312, end: 20210312
  37. PLATELETS [Concomitant]
     Active Substance: HUMAN PLATELET, ALLOGENIC
     Dosage: UNK
     Route: 042
     Dates: start: 20210328, end: 20210328

REACTIONS (3)
  - Febrile neutropenia [Recovered/Resolved]
  - Hypotension [Recovered/Resolved]
  - Infusion related reaction [Recovered/Resolved]

NARRATIVE: CASE EVENT DATE: 20210312
